FAERS Safety Report 10344311 (Version 5)
Quarter: 2017Q1

REPORT INFORMATION
  Report Type: Report from Study
  Country: US (occurrence: US)
  Receive Date: 20140728
  Receipt Date: 20170203
  Transmission Date: 20170428
  Serious: Yes (Hospitalization, Other)
  Sender: FDA-Public Use
  Company Number: US-ROCHE-1434652

PATIENT
  Age: 55 Year
  Sex: Male

DRUGS (25)
  1. AMOXICILLIN/CLAVULANATE [Concomitant]
     Active Substance: AMOXICILLIN\CLAVULANATE POTASSIUM
     Dosage: 500-125 MG
     Route: 048
     Dates: start: 20160923, end: 20161004
  2. INSULIN ASPART [Concomitant]
     Active Substance: INSULIN ASPART
     Route: 058
     Dates: start: 20160401
  3. INSULIN GLARGINE [Concomitant]
     Active Substance: INSULIN GLARGINE
     Dosage: 100UNIT/ML
     Route: 058
     Dates: start: 20121213
  4. KETOROLAC [Concomitant]
     Active Substance: KETOROLAC\KETOROLAC TROMETHAMINE
     Route: 047
     Dates: start: 20160406
  5. WARFARIN [Concomitant]
     Active Substance: WARFARIN
     Route: 048
     Dates: start: 20160804
  6. WARFARIN [Concomitant]
     Active Substance: WARFARIN
     Route: 048
     Dates: start: 20160728
  7. MONTELUKAST [Concomitant]
     Active Substance: MONTELUKAST SODIUM
     Route: 065
     Dates: start: 20160711
  8. FUROSEMIDE. [Concomitant]
     Active Substance: FUROSEMIDE
     Route: 048
     Dates: start: 20140416
  9. MONTELUKAST SODIUM. [Concomitant]
     Active Substance: MONTELUKAST SODIUM
     Route: 048
     Dates: start: 20130305
  10. ALBUTEROL. [Concomitant]
     Active Substance: ALBUTEROL
     Dosage: 6 INHALE
     Route: 055
     Dates: start: 20130225
  11. BUDESONIDE/FORMOTEROL FUMARATE [Concomitant]
     Active Substance: BUDESONIDE\FORMOTEROL FUMARATE
     Dosage: 80/4.5 MCG/ACTUATION
     Route: 055
     Dates: start: 20130529
  12. INSULIN GLARGINE [Concomitant]
     Active Substance: INSULIN GLARGINE
     Route: 058
     Dates: start: 20160329
  13. PREDNISONE. [Concomitant]
     Active Substance: PREDNISONE
     Route: 048
     Dates: start: 20160509
  14. AZATHIOPRINE. [Suspect]
     Active Substance: AZATHIOPRINE
     Indication: ANTI-NEUTROPHIL CYTOPLASMIC ANTIBODY POSITIVE VASCULITIS
     Dosage: ORAL AS PER PROTOCOL?MANTAINANCE DOSE,( RANDOMIZATION)
     Route: 048
     Dates: start: 20140801
  15. BUDESONIDE/FORMOTEROL FUMARATE [Concomitant]
     Active Substance: BUDESONIDE\FORMOTEROL FUMARATE
     Dosage: 80-4.5 MCG
     Route: 055
     Dates: start: 20160906
  16. ALBUTEROL. [Concomitant]
     Active Substance: ALBUTEROL
     Route: 055
     Dates: start: 20151223
  17. ACETAMINOPHEN/OXYCODONE [Concomitant]
     Active Substance: ACETAMINOPHEN\OXYCODONE HYDROCHLORIDE
     Dosage: 325-5 MG
     Route: 048
     Dates: start: 20160628
  18. ATORVASTATIN [Concomitant]
     Active Substance: ATORVASTATIN
     Route: 048
     Dates: start: 20160329
  19. RITUXIMAB [Suspect]
     Active Substance: RITUXIMAB
     Indication: PRODUCT USED FOR UNKNOWN INDICATION
     Dosage: OFF PROTOCOL USE
     Route: 065
     Dates: start: 20160721
  20. SULFAMETHOXAZOLE/TRIMETHOPRIM [Concomitant]
     Active Substance: SULFAMETHOXAZOLE\TRIMETHOPRIM
     Dosage: 800-160MG
     Route: 048
     Dates: start: 20130717
  21. INSULIN ASPART [Concomitant]
     Active Substance: INSULIN ASPART
     Dosage: 100UNIT/ML
     Route: 058
     Dates: start: 20120918
  22. RITUXIMAB [Suspect]
     Active Substance: RITUXIMAB
     Indication: ANTI-NEUTROPHIL CYTOPLASMIC ANTIBODY POSITIVE VASCULITIS
     Dosage: DOSE:779 MG?THE PATIENT HAD RECEIVED 4 DOSES FOR INDUCTION WHEN THE EVENT OCCURRED. LAST DOSE PRIOR
     Route: 042
     Dates: start: 20140414
  23. FUROSEMIDE. [Concomitant]
     Active Substance: FUROSEMIDE
     Route: 048
     Dates: start: 20141017
  24. ACETAMINOPHEN/OXYCODONE [Concomitant]
     Active Substance: ACETAMINOPHEN\OXYCODONE HYDROCHLORIDE
     Dosage: 325-5 MG
     Route: 048
     Dates: start: 2014
  25. RANITIDINE. [Concomitant]
     Active Substance: RANITIDINE
     Route: 048
     Dates: start: 20160624

REACTIONS (3)
  - Pneumonitis [Recovered/Resolved]
  - Off label use [Unknown]
  - Deep vein thrombosis [Recovered/Resolved with Sequelae]

NARRATIVE: CASE EVENT DATE: 20140711
